FAERS Safety Report 6930350-6 (Version None)
Quarter: 2010Q3

REPORT INFORMATION
  Report Type: 
  Country: None (occurrence: None)
  Receive Date: 20100818
  Receipt Date: 20100806
  Transmission Date: 20110219
  Serious: Yes (Other)
  Sender: FDA-Public Use
  Company Number: IE-NOVOPROD-313006

PATIENT
  Sex: Male
  Weight: 3.71 kg

DRUGS (2)
  1. INSULATARD [Suspect]
     Indication: TYPE 1 DIABETES MELLITUS
     Route: 064
  2. NOVORAPID [Suspect]
     Indication: TYPE 1 DIABETES MELLITUS
     Route: 064

REACTIONS (2)
  - CAUDAL REGRESSION SYNDROME [None]
  - SPINAL COLUMN STENOSIS [None]
